FAERS Safety Report 7706153-1 (Version None)
Quarter: 2011Q3

REPORT INFORMATION
  Report Type: 
  Country: None (occurrence: None)
  Receive Date: 20110824
  Receipt Date: 20110810
  Transmission Date: 20111222
  Serious: Yes (Hospitalization)
  Sender: FDA-Public Use
  Company Number: FR-NOVOPROD-333640

PATIENT

DRUGS (4)
  1. REPAGLINIDE [Suspect]
     Indication: DIABETES MELLITUS
     Dosage: UNK
     Route: 065
     Dates: start: 20110318
  2. RIFAMPIN [Suspect]
     Dosage: UNK
     Dates: start: 20110316, end: 20110321
  3. OXACILLIN [Suspect]
     Dosage: UNK
     Route: 065
     Dates: start: 20110305, end: 20110316
  4. LEVOFLOXACIN [Concomitant]
     Dosage: UNK
     Dates: start: 20110321

REACTIONS (4)
  - PURPURA [None]
  - RENAL FAILURE ACUTE [None]
  - RASH ERYTHEMATOUS [None]
  - TOXIC SKIN ERUPTION [None]
